FAERS Safety Report 5794904-5 (Version None)
Quarter: 2008Q2

REPORT INFORMATION
  Report Type: 
  Country: None (occurrence: None)
  Receive Date: 20080627
  Receipt Date: 20080627
  Transmission Date: 20081010
  Serious: No
  Sender: FDA-Public Use
  Company Number: None

PATIENT
  Age: 16 Year
  Sex: Female
  Weight: 54.4316 kg

DRUGS (1)
  1. SINGULAIR [Suspect]
     Dosage: 2 PUFFS OFTEN PO
     Route: 048

REACTIONS (1)
  - ALOPECIA [None]
